FAERS Safety Report 6167469-6 (Version None)
Quarter: 2009Q2

REPORT INFORMATION
  Report Type: 
  Country: None (occurrence: None)
  Receive Date: 20090424
  Receipt Date: 20090417
  Transmission Date: 20091009
  Serious: Yes (Other)
  Sender: FDA-Public Use
  Company Number: ES-SANOFI-SYNTHELABO-A01200904218

PATIENT
  Age: 80 Year
  Sex: Male

DRUGS (1)
  1. ELIGARD [Suspect]
     Indication: PROSTATE CANCER
     Dosage: ONCE EVERY 6 MONTHS 45 MG
     Route: 058
     Dates: start: 20090316, end: 20090316

REACTIONS (2)
  - DRUG INTOLERANCE [None]
  - OEDEMA PERIPHERAL [None]
